FAERS Safety Report 5002771-2 (Version None)
Quarter: 2006Q2

REPORT INFORMATION
  Report Type: 
  Country: None (occurrence: None)
  Receive Date: 20060512
  Receipt Date: 20060502
  Transmission Date: 20061013
  Serious: Yes (Hospitalization)
  Sender: FDA-Public Use
  Company Number: RENA-11751

PATIENT
  Sex: Female

DRUGS (1)
  1. RENAGEL [Suspect]
     Indication: HYPERPHOSPHATAEMIA
     Dosage: 1.6 G TID PO
     Route: 048
     Dates: start: 20051201

REACTIONS (4)
  - BLOOD PHOSPHORUS INCREASED [None]
  - DEHYDRATION [None]
  - ORAL INTAKE REDUCED [None]
  - VIRAL INFECTION [None]
